FAERS Safety Report 8554983-9 (Version None)
Quarter: 2012Q3

REPORT INFORMATION
  Report Type: 
  Country: None (occurrence: None)
  Receive Date: 20120731
  Receipt Date: 20120716
  Transmission Date: 20120928
  Serious: No
  Sender: FDA-Public Use
  Company Number: US-ASTRAZENECA-2012SE49840

PATIENT
  Age: 72 Year
  Sex: Male
  Weight: 63.5 kg

DRUGS (14)
  1. DONPERADONE [Concomitant]
  2. SULCRATE [Concomitant]
  3. COLACE [Concomitant]
     Indication: LAXATIVE SUPPORTIVE CARE
  4. AVODART [Concomitant]
     Indication: PROSTATOMEGALY
  5. CLONAZEPAM [Concomitant]
  6. PRAVASTATIN [Concomitant]
     Indication: BLOOD CHOLESTEROL INCREASED
  7. TRAZODONE HYDROCHLORIDE [Concomitant]
     Indication: SLEEP DISORDER
  8. NEXIUM [Suspect]
     Indication: HIATUS HERNIA
     Route: 048
  9. CELEBREX [Concomitant]
     Indication: ARTHRITIS
  10. NEXIUM [Suspect]
     Indication: DYSPEPSIA
     Route: 048
  11. FENTANYL CITRATE [Concomitant]
  12. NEXIUM [Suspect]
     Indication: BARRETT'S OESOPHAGUS
     Route: 048
  13. ESCITALOPRAM [Concomitant]
     Indication: DEPRESSION
  14. ABILIFY [Concomitant]
     Indication: DEPRESSION

REACTIONS (4)
  - DEMENTIA WITH LEWY BODIES [None]
  - DEPRESSION [None]
  - PARKINSON'S DISEASE [None]
  - OFF LABEL USE [None]
